FAERS Safety Report 6719285-1 (Version None)
Quarter: 2010Q2

REPORT INFORMATION
  Report Type: 
  Country: None (occurrence: None)
  Receive Date: 20100507
  Receipt Date: 20100423
  Transmission Date: 20101027
  Serious: Yes (Hospitalization, Other)
  Sender: FDA-Public Use
  Company Number: MC201000137

PATIENT
  Age: 58 Year
  Weight: 100 kg

DRUGS (4)
  1. ANGIOMAX [Suspect]
     Indication: ANTIPLATELET THERAPY
     Dosage: 0.75 MG/KG, BOLUS, INTRAVENOUS; 1.75 MG/KG, HR, INTRAVENOUS
     Route: 042
  2. ASPIRIN [Concomitant]
  3. CLOPIDOGREL [Concomitant]
  4. ABICIXIMAB (ABICIXIMAB) [Concomitant]

REACTIONS (5)
  - ANGINA UNSTABLE [None]
  - CHEST DISCOMFORT [None]
  - DYSPNOEA [None]
  - IN-STENT CORONARY ARTERY RESTENOSIS [None]
  - THROMBOSIS IN DEVICE [None]
